FAERS Safety Report 18706840 (Version 1)
Quarter: 2021Q1

REPORT INFORMATION
  Report Type: Spontaneous
  Country: CN (occurrence: CN)
  Receive Date: 20210106
  Receipt Date: 20210106
  Transmission Date: 20210419
  Serious: Yes (Life-Threatening, Other)
  Sender: FDA-Public Use
  Company Number: CN-PFIZER INC-2021001144

PATIENT
  Age: 52 Year
  Sex: Female
  Weight: 56 kg

DRUGS (2)
  1. PACLITAXEL. [Suspect]
     Active Substance: PACLITAXEL
     Indication: OVARIAN CANCER
     Dosage: 240 MG, 1X/DAY
     Route: 041
     Dates: start: 20201226, end: 20201226
  2. SODIUM CHLORIDE. [Suspect]
     Active Substance: SODIUM CHLORIDE
     Indication: OVARIAN CANCER
     Dosage: 500 ML, 1X/DAY
     Route: 041
     Dates: start: 20201226, end: 20201226

REACTIONS (6)
  - Oxygen saturation decreased [Recovering/Resolving]
  - Flushing [Recovering/Resolving]
  - Blood pressure decreased [Recovering/Resolving]
  - Suffocation feeling [Recovering/Resolving]
  - Chest discomfort [Recovering/Resolving]
  - Rash [Recovering/Resolving]

NARRATIVE: CASE EVENT DATE: 20201226
